FAERS Safety Report 21257401 (Version 1)
Quarter: 2022Q3

REPORT INFORMATION
  Report Type: Spontaneous
  Country: US (occurrence: None)
  Receive Date: 20220826
  Receipt Date: 20220826
  Transmission Date: 20221026
  Serious: Yes (Hospitalization, Other)
  Sender: FDA-Public Use
  Company Number: US-Hikma Pharmaceuticals USA Inc.-US-H14001-22-02112

PATIENT
  Age: 31 Year
  Sex: Female

DRUGS (2)
  1. METHADONE [Suspect]
     Active Substance: METHADONE HYDROCHLORIDE
     Indication: Drug use disorder
     Route: 048
  2. METHADONE [Suspect]
     Active Substance: METHADONE HYDROCHLORIDE
     Route: 048

REACTIONS (7)
  - Colitis ischaemic [Unknown]
  - Abdominal pain [Unknown]
  - Constipation [Unknown]
  - Ventricular tachycardia [Unknown]
  - Long QT syndrome [Unknown]
  - Drug withdrawal syndrome [Unknown]
  - Drug ineffective [Unknown]
